FAERS Safety Report 25436541 (Version 2)
Quarter: 2025Q4

REPORT INFORMATION
  Report Type: Spontaneous
  Country: US (occurrence: US)
  Receive Date: 20250614
  Receipt Date: 20251009
  Transmission Date: 20260117
  Serious: Yes (Other)
  Sender: ACCORD
  Company Number: US-MLMSERVICE-20250602-PI522697-00165-4

PATIENT
  Age: 51 Year
  Sex: Female

DRUGS (11)
  1. GEMCITABINE [Suspect]
     Active Substance: GEMCITABINE
     Indication: Invasive ductal breast carcinoma
     Dosage: TWO CYCLES
  2. ERIBULIN [Suspect]
     Active Substance: ERIBULIN
     Indication: Invasive ductal breast carcinoma
     Dosage: THREE CYCLES OF ERIBULIN (ON DAYS ONE AND 8 OF 21-DAY CYCLE)
  3. CYCLOBENZAPRINE [Concomitant]
     Active Substance: CYCLOBENZAPRINE
     Dosage: LONGSTANDING WITHOUT DOSE ADJUSTMENTS
  4. FUROSEMIDE [Concomitant]
     Active Substance: FUROSEMIDE
     Dosage: LONGSTANDING WITHOUT DOSE ADJUSTMENTS
  5. GABAPENTIN [Concomitant]
     Active Substance: GABAPENTIN
     Dosage: LONGSTANDING WITHOUT DOSE ADJUSTMENTS
  6. LEVETIRACETAM [Concomitant]
     Active Substance: LEVETIRACETAM
     Dosage: LONGSTANDING WITHOUT DOSE ADJUSTMENTS
  7. LIOTHYRONINE [Concomitant]
     Active Substance: LIOTHYRONINE
     Dosage: LONGSTANDING WITHOUT DOSE ADJUSTMENTS
  8. OCRELIZUMAB [Concomitant]
     Active Substance: OCRELIZUMAB
     Dosage: LONGSTANDING WITHOUT DOSE ADJUSTMENTS
  9. PROPRANOLOL [Concomitant]
     Active Substance: PROPRANOLOL HYDROCHLORIDE
     Dosage: LONGSTANDING WITHOUT DOSE ADJUSTMENTS
  10. SPIRONOLACTONE [Concomitant]
     Active Substance: SPIRONOLACTONE
     Dosage: LONGSTANDING WITHOUT DOSE ADJUSTMENTS
  11. TOPIRAMATE [Concomitant]
     Active Substance: TOPIRAMATE
     Dosage: LONGSTANDING WITHOUT DOSE ADJUSTMENTS

REACTIONS (2)
  - Subacute cutaneous lupus erythematosus [Recovered/Resolved]
  - Thrombocytopenia [Unknown]
